FAERS Safety Report 24303775 (Version 2)
Quarter: 2024Q3

REPORT INFORMATION
  Report Type: Spontaneous
  Country: US (occurrence: US)
  Receive Date: 20240910
  Receipt Date: 20240920
  Transmission Date: 20241016
  Serious: No
  Sender: ABBVIE
  Company Number: US-ABBVIE-5910150

PATIENT
  Age: 38 Year
  Sex: Female
  Weight: 47 kg

DRUGS (5)
  1. SYNTHROID [Suspect]
     Active Substance: LEVOTHYROXINE SODIUM
     Indication: Autoimmune thyroiditis
     Dosage: DOSE: 88 MCG
     Route: 048
     Dates: start: 20160101
  2. VITAMINS [Concomitant]
     Active Substance: VITAMINS
     Indication: Vitamin supplementation
     Dosage: DOSE: 1 4 GUMMIES PER DAY
     Route: 048
     Dates: start: 20240505
  3. LEVOTHYROXINE [Concomitant]
     Active Substance: LEVOTHYROXINE\LEVOTHYROXINE SODIUM
     Indication: Autoimmune thyroiditis
     Dosage: DOSE: 125 MCG
     Route: 048
     Dates: start: 20240723
  4. INDOMETHACIN [Concomitant]
     Active Substance: INDOMETHACIN
     Indication: Uterine pain
     Dosage: TIME INTERVAL: 0.33333333 DAYS
     Route: 048
     Dates: start: 20240829
  5. FOLIC ACID [Concomitant]
     Active Substance: FOLIC ACID
     Indication: Product used for unknown indication

REACTIONS (4)
  - Maternal exposure during pregnancy [Unknown]
  - Abdominal pain lower [Not Recovered/Not Resolved]
  - Degeneration of uterine leiomyoma [Not Recovered/Not Resolved]
  - Uterine leiomyoma [Unknown]

NARRATIVE: CASE EVENT DATE: 20240201
